FAERS Safety Report 11749497 (Version 1)
Quarter: 2015Q4

REPORT INFORMATION
  Report Type: Spontaneous
  Country: US (occurrence: None)
  Receive Date: 20151117
  Receipt Date: 20151117
  Transmission Date: 20160304
  Serious: Yes (Hospitalization)
  Sender: FDA-Public Use
  Company Number: None

PATIENT
  Age: 74 Year
  Sex: Male
  Weight: 96.16 kg

DRUGS (1)
  1. ELIQUIS [Suspect]
     Active Substance: APIXABAN
     Indication: BLOOD DISORDER
     Route: 048
     Dates: start: 20151113, end: 20151116

REACTIONS (4)
  - Fatigue [None]
  - Chest pain [None]
  - Feeling abnormal [None]
  - Skin discolouration [None]

NARRATIVE: CASE EVENT DATE: 20151114
